FAERS Safety Report 25444499 (Version 1)
Quarter: 2025Q2

REPORT INFORMATION
  Report Type: Spontaneous
  Country: US (occurrence: US)
  Receive Date: 20250617
  Receipt Date: 20250617
  Transmission Date: 20250717
  Serious: No
  Sender: AVERITAS
  Company Number: US-GRUNENTHAL-2025-108523

PATIENT
  Sex: Female
  Weight: 72.562 kg

DRUGS (2)
  1. QUTENZA [Suspect]
     Active Substance: CAPSAICIN
     Indication: Diabetic neuropathy
     Route: 061
     Dates: start: 202501, end: 202501
  2. QUTENZA [Suspect]
     Active Substance: CAPSAICIN
     Route: 061
     Dates: start: 20250515, end: 20250515

REACTIONS (2)
  - Pain [Not Recovered/Not Resolved]
  - Application site pain [Not Recovered/Not Resolved]

NARRATIVE: CASE EVENT DATE: 20250101
